APPROVED DRUG PRODUCT: ALVESCO
Active Ingredient: CICLESONIDE
Strength: 0.16MG/INH
Dosage Form/Route: AEROSOL, METERED;INHALATION
Application: N021658 | Product #003
Applicant: COVIS PHARMA GMBH
Approved: Jan 10, 2008 | RLD: Yes | RS: Yes | Type: RX

PATENTS:
Patent 8371292 | Expires: Feb 1, 2028